FAERS Safety Report 25019096 (Version 3)
Quarter: 2025Q2

REPORT INFORMATION
  Report Type: Report from Study
  Country: US (occurrence: US)
  Receive Date: 20250227
  Receipt Date: 20250502
  Transmission Date: 20250717
  Serious: Yes (Other)
  Sender: OTSUKA
  Company Number: US-OTSUKA-2025_002943

PATIENT
  Age: 33 Year
  Sex: Female
  Weight: 54.42 kg

DRUGS (8)
  1. TOLVAPTAN [Suspect]
     Active Substance: TOLVAPTAN
     Indication: Congenital cystic kidney disease
     Dosage: 45 MG, QD (IN THE MORNING)
     Route: 048
     Dates: start: 20241005, end: 20250122
  2. TOLVAPTAN [Suspect]
     Active Substance: TOLVAPTAN
     Dosage: 15 MG, QD (8 H LATER) (IN THE EVENING)
     Route: 048
     Dates: start: 20241005, end: 20250122
  3. ACETAMINOPHEN [Concomitant]
     Active Substance: ACETAMINOPHEN
     Indication: Product used for unknown indication
     Route: 048
  4. FLUTICASONE PROPIONATE [Concomitant]
     Active Substance: FLUTICASONE PROPIONATE
     Indication: Product used for unknown indication
     Dosage: 2 DF, DAILY AS NEEDED
     Route: 045
  5. IBUPROFEN [Concomitant]
     Active Substance: IBUPROFEN
     Indication: Product used for unknown indication
     Route: 048
  6. ONDANSETRON [Concomitant]
     Active Substance: ONDANSETRON
     Indication: Product used for unknown indication
     Route: 048
  7. SENNOSIDES [Concomitant]
     Active Substance: SENNOSIDES
     Indication: Product used for unknown indication
     Route: 065
  8. POTASSIUM CHLORIDE [Concomitant]
     Active Substance: POTASSIUM CHLORIDE
     Indication: Product used for unknown indication
     Dosage: 20 MEQ, DAILY (ER)
     Route: 048

REACTIONS (7)
  - Weight decreased [Recovered/Resolved]
  - Hypotonia [Recovered/Resolved]
  - Asthenia [Recovered/Resolved]
  - Decreased appetite [Recovering/Resolving]
  - Polydipsia [Recovering/Resolving]
  - Headache [Unknown]
  - Thirst [Unknown]

NARRATIVE: CASE EVENT DATE: 20241030
